FAERS Safety Report 13880183 (Version 1)
Quarter: 2017Q3

REPORT INFORMATION
  Report Type: Spontaneous
  Country: US (occurrence: US)
  Receive Date: 20170818
  Receipt Date: 20170818
  Transmission Date: 20171127
  Serious: No
  Sender: FDA-Public Use
  Company Number: US-GLAXOSMITHKLINE-US2017126959

PATIENT
  Sex: Female

DRUGS (8)
  1. ALLEGRA [Concomitant]
     Active Substance: FEXOFENADINE HYDROCHLORIDE
  2. BENICAR [Concomitant]
     Active Substance: OLMESARTAN MEDOXOMIL
  3. SINGULAIR [Concomitant]
     Active Substance: MONTELUKAST SODIUM
  4. FISH OIL [Concomitant]
     Active Substance: FISH OIL
  5. ADVAIR DISKUS [Suspect]
     Active Substance: FLUTICASONE PROPIONATE\SALMETEROL XINAFOATE
     Indication: ASTHMA
     Dosage: 1 PUFF(S), BID
     Route: 055
     Dates: end: 20170813
  6. BYSTOLIC [Concomitant]
     Active Substance: NEBIVOLOL HYDROCHLORIDE
  7. VERAPAMIL [Concomitant]
     Active Substance: VERAPAMIL HYDROCHLORIDE
  8. LASIX [Concomitant]
     Active Substance: FUROSEMIDE

REACTIONS (2)
  - Laryngeal cyst [Unknown]
  - Dysphonia [Unknown]

NARRATIVE: CASE EVENT DATE: 2015
